FAERS Safety Report 11457587 (Version 2)
Quarter: 2015Q3

REPORT INFORMATION
  Report Type: Spontaneous
  Country: BR (occurrence: BR)
  Receive Date: 20150904
  Receipt Date: 20150917
  Transmission Date: 20151125
  Serious: Yes (Death, Hospitalization)
  Sender: FDA-Public Use
  Company Number: BR-ASTRAZENECA-2015SE84222

PATIENT
  Age: 27392 Day
  Sex: Male
  Weight: 60 kg

DRUGS (4)
  1. IRESSA [Suspect]
     Active Substance: GEFITINIB
     Indication: LUNG NEOPLASM MALIGNANT
     Dosage: DAILY
     Route: 048
     Dates: start: 201508
  2. ATORVASTATIN [Concomitant]
     Active Substance: ATORVASTATIN
  3. METOPROLOL [Suspect]
     Active Substance: METOPROLOL
  4. ASA [Concomitant]
     Active Substance: ASPIRIN

REACTIONS (2)
  - Respiratory failure [Fatal]
  - Oral candidiasis [Unknown]

NARRATIVE: CASE EVENT DATE: 20150807
